FAERS Safety Report 9189430 (Version 2)
Quarter: 2013Q2

REPORT INFORMATION
  Report Type: Spontaneous
  Country: US (occurrence: None)
  Receive Date: 20130322
  Receipt Date: 20130513
  Transmission Date: 20140414
  Serious: Yes (Hospitalization, Other)
  Sender: FDA-Public Use
  Company Number: AUR-APL-2013-02437

PATIENT
  Age: 73 Year
  Sex: Female
  Weight: 62.59 kg

DRUGS (12)
  1. OXYCODONE (OXYCODONE) [Suspect]
     Indication: PAIN
  2. PREMPRO [Suspect]
     Dosage: (1 DOSAGE FORM,1 IN 1 D)
     Dates: start: 201302
  3. TYLENOL W/CODEINE NO. 3 [Suspect]
  4. VICODIN [Suspect]
  5. TRAMADOL HCL [Suspect]
  6. CARDIZEM [Concomitant]
  7. DIAZEPAM (DIAZEPAM) [Concomitant]
  8. HYDROCHLOROTHIAZIDE (HYDROCHLOROTHIAZIDE) [Concomitant]
  9. WARFARIN (WARFARIN) [Concomitant]
  10. METOPROLOL (METOPROLOL) [Concomitant]
  11. METOPROLOL TARTRATE (METOPROLOL TARTRATE) (TABLETS) (METOPROLOL TARTRATE) [Concomitant]
  12. ZOCOR (SIMVASTATIN) [Concomitant]

REACTIONS (7)
  - Nausea [None]
  - Vomiting [None]
  - Haematocrit decreased [None]
  - Red blood cell count decreased [None]
  - Neutrophil count decreased [None]
  - Full blood count abnormal [None]
  - Malaise [None]
